FAERS Safety Report 8162423-7 (Version None)
Quarter: 2012Q1

REPORT INFORMATION
  Report Type: 
  Country: None (occurrence: None)
  Receive Date: 20120224
  Receipt Date: 20101124
  Transmission Date: 20120608
  Serious: Yes (Death, Hospitalization)
  Sender: FDA-Public Use
  Company Number: JP-BAYER-201015480BYL

PATIENT
  Age: 77 Year
  Sex: Female

DRUGS (4)
  1. NEXAVAR [Suspect]
     Indication: HEPATIC NEOPLASM MALIGNANT
     Route: 048
     Dates: start: 20101019, end: 20101027
  2. URSO 250 [Concomitant]
     Indication: BILIARY CIRRHOSIS PRIMARY
     Dosage: 600 MG (DAILY DOSE), , ORAL
     Route: 048
     Dates: start: 20060809, end: 20101027
  3. ALDACTONE [Concomitant]
     Indication: OEDEMA
     Dosage: 75 MG (DAILY DOSE), , ORAL
     Route: 048
     Dates: start: 20060904, end: 20101027
  4. LIVACT [Concomitant]
     Indication: HYPOALBUMINAEMIA
     Dosage: 12.45 G (DAILY DOSE), , ORAL
     Route: 048
     Dates: start: 20060809, end: 20101027

REACTIONS (4)
  - RASH [None]
  - MULTI-ORGAN FAILURE [None]
  - PYREXIA [None]
  - HEPATIC ENCEPHALOPATHY [None]
